FAERS Safety Report 18749536 (Version 10)
Quarter: 2021Q4

REPORT INFORMATION
  Report Type: Report from Study
  Country: US (occurrence: US)
  Receive Date: 20210116
  Receipt Date: 20211214
  Transmission Date: 20220303
  Serious: Yes (Hospitalization)
  Sender: FDA-Public Use
  Company Number: NVSC2021US007095

PATIENT
  Age: 77 Year
  Sex: Female
  Weight: 47.619 kg

DRUGS (8)
  1. TREPROSTINIL [Suspect]
     Active Substance: TREPROSTINIL
     Indication: Pulmonary arterial hypertension
     Dosage: (75 NG/KG/MIN), CONT
     Route: 042
     Dates: start: 20201016
  2. TREPROSTINIL [Suspect]
     Active Substance: TREPROSTINIL
     Dosage: (75 NG/KG/MIN), CONT
     Route: 042
  3. TREPROSTINIL [Suspect]
     Active Substance: TREPROSTINIL
     Dosage: (75 NG/KG/MIN), CONT
     Route: 042
  4. TREPROSTINIL [Suspect]
     Active Substance: TREPROSTINIL
     Dosage: 75 NG/KG/MIN,CONT
     Route: 042
  5. TREPROSTINIL [Suspect]
     Active Substance: TREPROSTINIL
     Dosage: 85 NG/KG/MIN,CONT
     Route: 042
  6. AMBRISENTAN [Concomitant]
     Active Substance: AMBRISENTAN
     Indication: Product used for unknown indication
     Dosage: UNK
     Route: 065
  7. ADEMPAS [Concomitant]
     Active Substance: RIOCIGUAT
     Indication: Product used for unknown indication
     Dosage: UNK
     Route: 065
     Dates: end: 202111
  8. WARFARIN [Concomitant]
     Active Substance: WARFARIN
     Indication: Product used for unknown indication
     Dosage: UNK
     Route: 065

REACTIONS (9)
  - Abdominal wall haemorrhage [Unknown]
  - COVID-19 [Unknown]
  - Anaemia [Unknown]
  - Blood iron decreased [Unknown]
  - Gastrointestinal haemorrhage [Unknown]
  - Myalgia [Unknown]
  - Asthenia [Unknown]
  - Pain in jaw [Unknown]
  - Nausea [Unknown]

NARRATIVE: CASE EVENT DATE: 20210103
